FAERS Safety Report 10328135 (Version 1)
Quarter: 2014Q3

REPORT INFORMATION
  Report Type: Spontaneous
  Country: DK (occurrence: DK)
  Receive Date: 20140721
  Receipt Date: 20140721
  Transmission Date: 20150326
  Serious: Yes (Hospitalization)
  Sender: FDA-Public Use
  Company Number: DK-MYLANLABS-2014S1016510

PATIENT
  Age: 50 Year
  Sex: Female

DRUGS (2)
  1. SOLU-CORTEF [Concomitant]
     Active Substance: HYDROCORTISONE SODIUM SUCCINATE
     Indication: ARTHROPOD BITE
     Dosage: 100MG
     Route: 042
  2. EPINEPHRINE. [Suspect]
     Active Substance: EPINEPHRINE
     Indication: ARTHROPOD BITE
     Dosage: 1MG OF 1:10000 SOLUTION
     Route: 042

REACTIONS (4)
  - Petit mal epilepsy [Recovered/Resolved]
  - Chest pain [Recovered/Resolved]
  - Torsade de pointes [Recovered/Resolved]
  - Stress cardiomyopathy [Recovered/Resolved]
